FAERS Safety Report 8261895-7 (Version None)
Quarter: 2012Q2

REPORT INFORMATION
  Report Type: 
  Country: None (occurrence: None)
  Receive Date: 20120402
  Receipt Date: 20120323
  Transmission Date: 20120825
  Serious: Yes (Hospitalization)
  Sender: FDA-Public Use
  Company Number: 2012SP016274

PATIENT
  Age: 50 Year
  Sex: Male

DRUGS (4)
  1. DIPHENHYDRAMINE HYDROCHLORIDE [Suspect]
     Indication: PRODUCT USED FOR UNKNOWN INDICATION
     Dosage: 2500 MG;ONCE
     Dates: start: 20111121, end: 20111121
  2. REMERON SOLTAB [Suspect]
     Indication: PRODUCT USED FOR UNKNOWN INDICATION
     Dosage: 90 MG;ONCE
     Dates: start: 20111121, end: 20111121
  3. LITHIUM ACETATE (LITHIUM ACETATE) (1 DF) [Suspect]
     Indication: PRODUCT USED FOR UNKNOWN INDICATION
     Dosage: 1 DF;PO
     Route: 048
     Dates: start: 20111121, end: 20111121
  4. SIMVASTATIN [Suspect]
     Indication: PRODUCT USED FOR UNKNOWN INDICATION
     Dosage: 1 DF;PO
     Route: 048
     Dates: start: 20111121, end: 20111121

REACTIONS (7)
  - ELECTROCARDIOGRAM QT PROLONGED [None]
  - ELECTROCARDIOGRAM QRS COMPLEX PROLONGED [None]
  - SUICIDE ATTEMPT [None]
  - SOMNOLENCE [None]
  - TACHYCARDIA [None]
  - BLOOD CREATINE PHOSPHOKINASE INCREASED [None]
  - MULTIPLE DRUG OVERDOSE INTENTIONAL [None]
